FAERS Safety Report 20456854 (Version 2)
Quarter: 2022Q1

REPORT INFORMATION
  Report Type: Spontaneous
  Country: NL (occurrence: NL)
  Receive Date: 20220210
  Receipt Date: 20220309
  Transmission Date: 20220423
  Serious: Yes (Other)
  Sender: FDA-Public Use
  Company Number: NL-HORIZON THERAPEUTICS-HZN-2022-001036

PATIENT

DRUGS (1)
  1. RAVICTI [Suspect]
     Active Substance: GLYCEROL PHENYLBUTYRATE
     Indication: Product used for unknown indication
     Route: 065

REACTIONS (3)
  - Nasal cavity cancer [Unknown]
  - Drug ineffective [Unknown]
  - Liver transplant [Unknown]
